FAERS Safety Report 7228176-1 (Version None)
Quarter: 2011Q1

REPORT INFORMATION
  Report Type: 
  Country: None (occurrence: None)
  Receive Date: 20110114
  Receipt Date: 20110110
  Transmission Date: 20110831
  Serious: Yes (Hospitalization, Other)
  Sender: FDA-Public Use
  Company Number: FR-PFIZER INC-2011005843

PATIENT
  Age: 21 Year
  Sex: Male

DRUGS (3)
  1. CYMBALTA [Suspect]
     Dosage: UNK
     Route: 048
     Dates: start: 20101208, end: 20101208
  2. RHINADVIL [Suspect]
     Dosage: UNK
     Route: 048
     Dates: start: 20101208, end: 20101208
  3. ALFATIL [Suspect]
     Dosage: UNK
     Route: 048
     Dates: start: 20101208, end: 20101208

REACTIONS (1)
  - INTENTIONAL DRUG MISUSE [None]
